FAERS Safety Report 11414133 (Version 1)
Quarter: 2015Q3

REPORT INFORMATION
  Report Type: Spontaneous
  Country: GB (occurrence: GB)
  Receive Date: 20150824
  Receipt Date: 20150824
  Transmission Date: 20151125
  Serious: Yes (Life-Threatening, Hospitalization, Other)
  Sender: FDA-Public Use
  Company Number: GB-PFIZER INC-2015280158

PATIENT
  Age: 24 Year
  Sex: Male
  Weight: 70 kg

DRUGS (2)
  1. PREGABALIN. [Suspect]
     Active Substance: PREGABALIN
     Route: 048
  2. BUPRENORPHINE. [Interacting]
     Active Substance: BUPRENORPHINE
     Dosage: 4 MG, UNK
     Route: 048

REACTIONS (3)
  - Seizure [Recovered/Resolved with Sequelae]
  - Drug interaction [Unknown]
  - Cyanosis [Unknown]
